FAERS Safety Report 10696101 (Version 6)
Quarter: 2016Q4

REPORT INFORMATION
  Report Type: Spontaneous
  Country: US (occurrence: US)
  Receive Date: 20150107
  Receipt Date: 20161006
  Transmission Date: 20170206
  Serious: Yes (Other)
  Sender: FDA-Public Use
  Company Number: US-PFIZER INC-2015003876

PATIENT
  Age: 81 Year
  Sex: Female
  Weight: 89.8 kg

DRUGS (15)
  1. VITAMIN D [Concomitant]
     Active Substance: CHOLECALCIFEROL
     Dosage: 1000 IU, UNK
  2. CIPROFLOXACIN HCL [Concomitant]
     Active Substance: CIPROFLOXACIN HYDROCHLORIDE
     Dosage: 500 MG, 2X/DAY (TAKE 1 TABLET EVERY 12 HOURS )
     Route: 048
  3. XELJANZ [Suspect]
     Active Substance: TOFACITINIB CITRATE
     Dosage: 10 MG, 2X/DAY
     Dates: end: 20160701
  4. METFORMIN HCL [Concomitant]
     Active Substance: METFORMIN HYDROCHLORIDE
     Dosage: 500 MG, UNK (TAKE 1 TABLET IN AM AND 2 TABLETS IN PM)
     Route: 048
  5. FLORASTOR [Concomitant]
     Active Substance: SACCHAROMYCES CEREVISIAE
     Dosage: UNK
  6. METHOTREXATE. [Concomitant]
     Active Substance: METHOTREXATE
     Dosage: 10 MG, WEEKLY
     Route: 048
  7. TRAVATAN Z [Concomitant]
     Active Substance: TRAVOPROST
     Dosage: 1 GTT, UNK  (INSTILL 1 DROP RIGHT EYE AT BEDTIME)
     Route: 047
  8. FOLIC ACID. [Concomitant]
     Active Substance: FOLIC ACID
     Dosage: 1 MG, DAILY
     Route: 048
  9. PRADAXA [Concomitant]
     Active Substance: DABIGATRAN ETEXILATE MESYLATE
     Dosage: UNK MG, UNK
     Dates: start: 2010
  10. XELJANZ [Suspect]
     Active Substance: TOFACITINIB CITRATE
     Indication: RHEUMATOID ARTHRITIS
     Dosage: 5 MG, 2X/DAY
     Dates: end: 20150103
  11. PRESERVISION LUTEIN [Concomitant]
     Active Substance: MINERALS\VITAMINS
     Dosage: 1 DF, 2X/DAY
  12. PRADAXA [Concomitant]
     Active Substance: DABIGATRAN ETEXILATE MESYLATE
     Dosage: 150 MG, 2X/DAY (1 CAPSULE EVERY TWELVE HOURS)
     Route: 048
  13. SOTALOL HCL [Concomitant]
     Active Substance: SOTALOL
     Dosage: UNK, 2X/DAY (TAKE 0.5 TABLET TWICE DAILY)
     Route: 048
  14. SYNTHROID [Concomitant]
     Active Substance: LEVOTHYROXINE SODIUM
     Dosage: 75 UG, DAILY
  15. SIMBRINZA [Concomitant]
     Active Substance: BRIMONIDINE TARTRATE\BRINZOLAMIDE
     Dosage: 3 GTT, UNK  (1-0.2 % OPHTHALMIC SUSPENSION, INSTILL 3 DROP DAILY LEFT EYE)
     Route: 047

REACTIONS (5)
  - Diverticulitis [Recovered/Resolved]
  - Upper respiratory tract infection [Recovered/Resolved]
  - Extra dose administered [Unknown]
  - Arthralgia [Unknown]
  - Synovitis [Unknown]

NARRATIVE: CASE EVENT DATE: 20150102
